FAERS Safety Report 10024531 (Version 1)
Quarter: 2014Q1

REPORT INFORMATION
  Report Type: Spontaneous
  Country: IT (occurrence: IT)
  Receive Date: 20140320
  Receipt Date: 20140320
  Transmission Date: 20141002
  Serious: Yes (Other)
  Sender: FDA-Public Use
  Company Number: IT-GE HEALTHCARE MEDICAL DIAGNOSTICS-OSCN-PR-1403L-0057

PATIENT
  Sex: Male

DRUGS (8)
  1. GADOLINIUM (UNSPECIFIED) [Suspect]
     Indication: MULTIPLE SCLEROSIS
     Dosage: DOSE NOT REPORTED
     Route: 065
  2. GADOLINIUM (UNSPECIFIED) [Suspect]
     Indication: DIAGNOSTIC PROCEDURE
  3. CELLFOOD DROPS [Concomitant]
  4. AZATHIOPRINE [Concomitant]
  5. MITOXANDRONE [Concomitant]
  6. EDTA [Concomitant]
  7. ULTRATHIONE [Concomitant]
  8. SOLUMEDROL [Concomitant]

REACTIONS (1)
  - Multiple sclerosis relapse [Recovering/Resolving]
